FAERS Safety Report 4782719-6 (Version None)
Quarter: 2005Q3

REPORT INFORMATION
  Report Type: 
  Country: None (occurrence: None)
  Receive Date: 20050929
  Receipt Date: 20050822
  Transmission Date: 20060218
  Serious: No
  Sender: FDA-Public Use
  Company Number: 415192

PATIENT
  Age: 81 Year
  Sex: Female

DRUGS (5)
  1. COREG [Suspect]
     Dosage: 3.125MG TWICE PER DAY
     Route: 048
     Dates: start: 20050820
  2. STEROID SHOT [Concomitant]
  3. TYLENOL (CAPLET) [Concomitant]
  4. PREDNISONE [Concomitant]
  5. DIURETIC [Concomitant]
     Route: 065

REACTIONS (1)
  - DIZZINESS [None]
